FAERS Safety Report 16189473 (Version 1)
Quarter: 2019Q2

REPORT INFORMATION
  Report Type: Spontaneous
  Country: IT (occurrence: IT)
  Receive Date: 20190412
  Receipt Date: 20190412
  Transmission Date: 20190711
  Serious: Yes (Other)
  Sender: FDA-Public Use
  Company Number: IT-CORDEN PHARMA LATINA S.P.A.-IT-2019COR000080

PATIENT

DRUGS (3)
  1. PEMETREXED. [Suspect]
     Active Substance: PEMETREXED
     Indication: EPITHELIOID MESOTHELIOMA
     Dosage: UNK, 4 CYCLES
     Route: 065
     Dates: start: 2016, end: 201611
  2. CARBOPLATIN. [Suspect]
     Active Substance: CARBOPLATIN
     Indication: EPITHELIOID MESOTHELIOMA
     Dosage: UNK, 4 CYCLES
     Route: 065
     Dates: start: 2016, end: 201611
  3. RADIOTHERAPY [Suspect]
     Active Substance: RADIATION THERAPY
     Indication: EPITHELIOID MESOTHELIOMA
     Dosage: 50 GY IN FRACTIONS
     Route: 065
     Dates: start: 2016, end: 201702

REACTIONS (3)
  - Interstitial lung disease [Unknown]
  - Atrial fibrillation [Unknown]
  - Respiratory failure [Unknown]

NARRATIVE: CASE EVENT DATE: 201704
